FAERS Safety Report 22317600 (Version 1)
Quarter: 2023Q2

REPORT INFORMATION
  Report Type: Spontaneous
  Country: US (occurrence: US)
  Receive Date: 20230515
  Receipt Date: 20230515
  Transmission Date: 20230721
  Serious: Yes (Other)
  Sender: FDA-Public Use
  Company Number: US-ROCHE-3344768

PATIENT
  Sex: Male

DRUGS (2)
  1. VALGANCICLOVIR HYDROCHLORIDE [Suspect]
     Active Substance: VALGANCICLOVIR HYDROCHLORIDE
     Indication: Cytomegalovirus infection
     Dosage: DAILY DOSE: 450 MILLIGRAM
  2. VALGANCICLOVIR HYDROCHLORIDE [Suspect]
     Active Substance: VALGANCICLOVIR HYDROCHLORIDE
     Indication: Lung transplant
     Dosage: DAILY DOSE: 450 MILLIGRAM

REACTIONS (3)
  - Cerebrovascular accident [Unknown]
  - Seizure [Unknown]
  - Product use in unapproved indication [Unknown]
